FAERS Safety Report 8175439-1 (Version None)
Quarter: 2012Q1

REPORT INFORMATION
  Report Type: 
  Country: None (occurrence: None)
  Receive Date: 20120229
  Receipt Date: 20120227
  Transmission Date: 20120608
  Serious: Yes (Other)
  Sender: FDA-Public Use
  Company Number: RU-ROCHE-1043368

PATIENT
  Age: 44 Year
  Sex: Female

DRUGS (4)
  1. XENICAL [Suspect]
     Indication: OVERWEIGHT
     Route: 048
  2. RIBOXINE [Concomitant]
     Indication: CARDIAC FAILURE
  3. ACTOVEGIN [Concomitant]
  4. BISOPROLOL FUMARATE [Concomitant]
     Indication: CARDIAC FAILURE

REACTIONS (8)
  - DRUG INEFFECTIVE [None]
  - HEADACHE [None]
  - TACHYCARDIA [None]
  - STEATORRHOEA [None]
  - CARDIAC FAILURE [None]
  - PRODUCT COUNTERFEIT [None]
  - GASTROINTESTINAL PAIN [None]
  - PYREXIA [None]
